FAERS Safety Report 8524033 (Version 7)
Quarter: 2014Q4

REPORT INFORMATION
  Report Type: Spontaneous
  Country: DK (occurrence: DK)
  Receive Date: 20120420
  Receipt Date: 20141021
  Transmission Date: 20150529
  Serious: Yes (Hospitalization, Other)
  Sender: FDA-Public Use
  Company Number: PHHY2012DK032796

PATIENT
  Age: 25 Year
  Sex: Female

DRUGS (2)
  1. GESTONETTE [Suspect]
     Active Substance: ETHINYL ESTRADIOL\GESTODENE
     Indication: DYSMENORRHOEA
     Dates: end: 2011
  2. GESTONETTE [Suspect]
     Active Substance: ETHINYL ESTRADIOL\GESTODENE
     Indication: CONTRACEPTION

REACTIONS (16)
  - Pneumonia [Recovered/Resolved with Sequelae]
  - Chest pain [Recovered/Resolved with Sequelae]
  - Performance status decreased [Recovered/Resolved with Sequelae]
  - Peripheral swelling [Not Recovered/Not Resolved]
  - Skin discolouration [Recovered/Resolved with Sequelae]
  - Fibrin D dimer increased [Recovered/Resolved with Sequelae]
  - Cough [Recovered/Resolved with Sequelae]
  - Limb discomfort [Recovered/Resolved with Sequelae]
  - Pain in extremity [Not Recovered/Not Resolved]
  - Thrombosis [Recovered/Resolved with Sequelae]
  - Pulmonary embolism [Unknown]
  - Nasopharyngitis [Recovered/Resolved with Sequelae]
  - Back pain [Unknown]
  - Cardiac murmur [Unknown]
  - Pyrexia [Recovered/Resolved with Sequelae]
  - Oropharyngeal pain [Recovered/Resolved with Sequelae]

NARRATIVE: CASE EVENT DATE: 20110628
